FAERS Safety Report 10760782 (Version 1)
Quarter: 2015Q1

REPORT INFORMATION
  Report Type: Spontaneous
  Country: US (occurrence: US)
  Receive Date: 20150204
  Receipt Date: 20150204
  Transmission Date: 20150721
  Serious: Yes (Other)
  Sender: FDA-Public Use
  Company Number: US-JNJFOC-20150115782

PATIENT
  Sex: Male
  Weight: 77.57 kg

DRUGS (3)
  1. LEVAQUIN [Suspect]
     Active Substance: LEVOFLOXACIN
     Indication: SINUSITIS
     Route: 048
  2. LEVAQUIN [Suspect]
     Active Substance: LEVOFLOXACIN
     Indication: RESPIRATORY TRACT INFECTION
     Route: 048
  3. LEVAQUIN [Suspect]
     Active Substance: LEVOFLOXACIN
     Indication: INFLUENZA
     Route: 048

REACTIONS (1)
  - Pain in extremity [Recovering/Resolving]
